FAERS Safety Report 6983366-8 (Version None)
Quarter: 2010Q3

REPORT INFORMATION
  Report Type: 
  Country: None (occurrence: None)
  Receive Date: 20100914
  Receipt Date: 20100914
  Transmission Date: 20110219
  Serious: Yes (Other)
  Sender: FDA-Public Use
  Company Number: None

PATIENT
  Age: 26 Year
  Sex: Female
  Weight: 87.9978 kg

DRUGS (2)
  1. ZOLOFT [Suspect]
     Indication: MAJOR DEPRESSION
     Dosage: 200 MG 1X DAILY PO
     Route: 048
     Dates: start: 20040306, end: 20040605
  2. SERTRALINE 20MG/ML APOTEX [Suspect]
     Indication: MAJOR DEPRESSION
     Dosage: 2.5ML 1X DAILY PO
     Route: 048
     Dates: start: 20091015, end: 20100901

REACTIONS (18)
  - ABNORMAL DREAMS [None]
  - ASTHENIA [None]
  - BLOOD GLUCOSE DECREASED [None]
  - BLOOD PRESSURE INCREASED [None]
  - CHILLS [None]
  - CRYING [None]
  - DYSGEUSIA [None]
  - FEELING ABNORMAL [None]
  - FEELING OF BODY TEMPERATURE CHANGE [None]
  - HEADACHE [None]
  - ILL-DEFINED DISORDER [None]
  - INITIAL INSOMNIA [None]
  - IRRITABILITY [None]
  - MUSCLE TWITCHING [None]
  - NAUSEA [None]
  - SINUS HEADACHE [None]
  - VERTIGO [None]
  - VOMITING [None]
